FAERS Safety Report 7948349-X (Version None)
Quarter: 2011Q4

REPORT INFORMATION
  Report Type: 
  Country: None (occurrence: None)
  Receive Date: 20111130
  Receipt Date: 20111123
  Transmission Date: 20120403
  Serious: Yes (Hospitalization, Other)
  Sender: FDA-Public Use
  Company Number: US-BAYER-2011-108906

PATIENT
  Age: 62 Year
  Sex: Male

DRUGS (1)
  1. NEXAVAR [Suspect]
     Indication: HEPATIC NEOPLASM MALIGNANT
     Dosage: 200 MG, BID
     Route: 048
     Dates: start: 20111101, end: 20111114

REACTIONS (7)
  - VOMITING [None]
  - BLISTER [None]
  - SKIN ULCER [None]
  - BEDRIDDEN [None]
  - INCREASED UPPER AIRWAY SECRETION [None]
  - DYSPHONIA [None]
  - ACNE [None]
